FAERS Safety Report 7753191-9 (Version None)
Quarter: 2011Q3

REPORT INFORMATION
  Report Type: 
  Country: None (occurrence: None)
  Receive Date: 20110915
  Receipt Date: 20110908
  Transmission Date: 20111222
  Serious: Yes (Other)
  Sender: FDA-Public Use
  Company Number: PHEH2011US03840

PATIENT
  Sex: Female
  Weight: 58.957 kg

DRUGS (1)
  1. SANDOSTATIN LAR [Suspect]
     Indication: CARCINOID SYNDROME
     Dosage: 30 MG, EVERY 4 WEEKS
     Route: 030
     Dates: start: 20110402, end: 20110701

REACTIONS (4)
  - INJECTION SITE INFECTION [None]
  - FLUSHING [None]
  - MIGRAINE [None]
  - DIZZINESS [None]
